FAERS Safety Report 20891048 (Version 1)
Quarter: 2022Q2

REPORT INFORMATION
  Report Type: Spontaneous
  Country: US (occurrence: US)
  Receive Date: 20220530
  Receipt Date: 20220530
  Transmission Date: 20220721
  Serious: No
  Sender: FDA-Public Use
  Company Number: US-BRISTOL-MYERS SQUIBB COMPANY-2022-033838

PATIENT
  Age: 71 Year
  Sex: Male
  Weight: 106.59 kg

DRUGS (1)
  1. REVLIMID [Suspect]
     Active Substance: LENALIDOMIDE
     Indication: Plasma cell myeloma
     Route: 048
     Dates: start: 202203

REACTIONS (6)
  - Fatigue [Unknown]
  - Sleep apnoea syndrome [Unknown]
  - Depressed mood [Unknown]
  - Somnolence [Unknown]
  - Insomnia [Unknown]
  - Intentional product use issue [Unknown]
